FAERS Safety Report 4346410-2 (Version None)
Quarter: 2004Q1

REPORT INFORMATION
  Report Type: 
  Country: None (occurrence: None)
  Receive Date: 20040325
  Receipt Date: 20040216
  Transmission Date: 20041129
  Serious: No
  Sender: FDA-Public Use
  Company Number: USA031253891

PATIENT
  Age: 83 Year
  Sex: Female

DRUGS (5)
  1. FORTEO [Suspect]
     Indication: OSTEOPOROSIS
     Dosage: 20 UG/DAY
     Dates: start: 20031118
  2. NEXIUM [Concomitant]
  3. NORVASC [Concomitant]
  4. ZOCOR [Concomitant]
  5. LEXAPRO [Concomitant]

REACTIONS (2)
  - INJECTION SITE DISCOLOURATION [None]
  - SUBCUTANEOUS NODULE [None]
